FAERS Safety Report 7924166-1 (Version None)
Quarter: 2011Q4

REPORT INFORMATION
  Report Type: 
  Country: None (occurrence: None)
  Receive Date: 20111117
  Receipt Date: 20110215
  Transmission Date: 20120403
  Serious: No
  Sender: FDA-Public Use
  Company Number: US-AMGEN-USASP2011009178

PATIENT
  Age: 43 Year
  Sex: Female

DRUGS (1)
  1. ENBREL [Suspect]
     Indication: RHEUMATOID ARTHRITIS
     Dosage: 50 MG, QWK
     Dates: start: 20110127

REACTIONS (5)
  - RASH [None]
  - VULVOVAGINAL PRURITUS [None]
  - LOWER EXTREMITY MASS [None]
  - OPEN WOUND [None]
  - VULVOVAGINAL DISCOMFORT [None]
